FAERS Safety Report 19453614 (Version 2)
Quarter: 2021Q3

REPORT INFORMATION
  Report Type: Report from Study
  Country: AR (occurrence: AR)
  Receive Date: 20210623
  Receipt Date: 20210707
  Transmission Date: 20211014
  Serious: Yes (Other)
  Sender: FDA-Public Use
  Company Number: NVSC2021AR134343

PATIENT
  Sex: Female

DRUGS (5)
  1. ISLOTIN [Concomitant]
     Indication: DIABETES MELLITUS
     Dosage: 2 DF, QD
     Route: 065
  2. LOSARTAN. [Concomitant]
     Active Substance: LOSARTAN
     Indication: HYPERTENSION
     Dosage: 50 MG, QD(1 OF 50 MG)
     Route: 065
  3. CORPRES [Concomitant]
     Indication: HYPERTENSION
     Dosage: 1 DF, QD (STARTED 3 MONTHS AGO)
     Route: 065
  4. COSENTYX [Suspect]
     Active Substance: SECUKINUMAB
     Dosage: UNK UNK, UNKNOWN
     Route: 065
  5. COSENTYX [Suspect]
     Active Substance: SECUKINUMAB
     Indication: PSORIATIC ARTHROPATHY
     Dosage: 300 MG, QMO
     Route: 058
     Dates: start: 20180504

REACTIONS (6)
  - Panic disorder [Unknown]
  - Fear [Recovering/Resolving]
  - Dyspnoea [Recovering/Resolving]
  - Arrhythmia [Unknown]
  - Tachycardia [Unknown]
  - Panic attack [Recovering/Resolving]
